FAERS Safety Report 6483386-6 (Version None)
Quarter: 2009Q4

REPORT INFORMATION
  Report Type: 
  Country: None (occurrence: None)
  Receive Date: 20091123
  Receipt Date: 20090723
  Transmission Date: 20100525
  Serious: No
  Sender: FDA-Public Use
  Company Number: 8049373

PATIENT
  Sex: Female
  Weight: 47.7 kg

DRUGS (2)
  1. CIMZIA [Suspect]
     Indication: CROHN'S DISEASE
     Dosage: 400 MG SC
     Route: 058
     Dates: start: 20090427
  2. PREDNISONE TAB [Concomitant]

REACTIONS (4)
  - ABSCESS [None]
  - INJECTION SITE HAEMATOMA [None]
  - INJECTION SITE OEDEMA [None]
  - WEIGHT INCREASED [None]
